FAERS Safety Report 13783362 (Version 1)
Quarter: 2017Q3

REPORT INFORMATION
  Report Type: Spontaneous
  Country: US (occurrence: US)
  Receive Date: 20170724
  Receipt Date: 20170724
  Transmission Date: 20171127
  Serious: No
  Sender: FDA-Public Use
  Company Number: US-009507513-1707USA009215

PATIENT
  Age: 20 Year
  Sex: Female
  Weight: 81.8 kg

DRUGS (1)
  1. NEXPLANON [Suspect]
     Active Substance: ETONOGESTREL
     Indication: CONTRACEPTION
     Dosage: 1 DF, 3 YEAR IMPLANT; INSIDE LEFT ARM
     Route: 059

REACTIONS (4)
  - Influenza like illness [Unknown]
  - Asthenia [Unknown]
  - Medical device site bruise [Unknown]
  - Hypoaesthesia [Unknown]

NARRATIVE: CASE EVENT DATE: 20170720
